FAERS Safety Report 7660610-5 (Version None)
Quarter: 2011Q3

REPORT INFORMATION
  Report Type: 
  Country: None (occurrence: None)
  Receive Date: 20110805
  Receipt Date: 20101029
  Transmission Date: 20111222
  Serious: No
  Sender: FDA-Public Use
  Company Number: US-ABBOTT-10P-163-0682750-00

PATIENT
  Sex: Male
  Weight: 90.8 kg

DRUGS (5)
  1. NIASPAN [Suspect]
     Indication: BLOOD CHOLESTEROL INCREASED
     Route: 048
     Dates: start: 20101018, end: 20101027
  2. METOPROLOL TARTRATE [Concomitant]
     Indication: HYPERTENSION
  3. LISINOPRIL [Concomitant]
     Indication: HYPERTENSION
  4. ASPIRIN [Concomitant]
     Indication: MYOCARDIAL INFARCTION
  5. FLONASE [Concomitant]
     Indication: SINUS DISORDER
     Route: 045

REACTIONS (6)
  - FLUSHING [None]
  - FEELING HOT [None]
  - HYPERHIDROSIS [None]
  - DIARRHOEA [None]
  - NAUSEA [None]
  - ABDOMINAL DISTENSION [None]
